FAERS Safety Report 11105708 (Version 1)
Quarter: 2015Q2

REPORT INFORMATION
  Report Type: Spontaneous
  Country: US (occurrence: None)
  Receive Date: 20150511
  Receipt Date: 20150511
  Transmission Date: 20150821
  Serious: Yes (Death)
  Sender: FDA-Public Use
  Company Number: None

PATIENT
  Age: 79 Year
  Sex: Male
  Weight: 105 kg

DRUGS (1)
  1. XARELTO [Suspect]
     Active Substance: RIVAROXABAN
     Indication: PULMONARY EMBOLISM
     Dosage: 1 TABLET, QD, ORAL
     Route: 048
     Dates: start: 20150227, end: 20150413

REACTIONS (5)
  - Haematochezia [None]
  - Cardio-respiratory arrest [None]
  - Procedural complication [None]
  - Haematemesis [None]
  - Fall [None]

NARRATIVE: CASE EVENT DATE: 20150414
